FAERS Safety Report 4398072-6 (Version None)
Quarter: 2004Q3

REPORT INFORMATION
  Report Type: 
  Country: None (occurrence: None)
  Receive Date: 20040714
  Receipt Date: 20040714
  Transmission Date: 20050211
  Serious: Yes (Other)
  Sender: FDA-Public Use
  Company Number: None

PATIENT
  Age: 28 Year
  Sex: Female
  Weight: 68.0396 kg

DRUGS (2)
  1. ZOLOFT [Suspect]
     Indication: BIPOLAR DISORDER
     Dosage: 50 MG 1 PER DAY ORAL
     Route: 048
     Dates: start: 19970315, end: 20040701
  2. ZOLOFT [Suspect]
     Indication: BIPOLAR I DISORDER
     Dosage: 50 MG 1 PER DAY ORAL
     Route: 048
     Dates: start: 19970315, end: 20040701

REACTIONS (5)
  - AGITATION [None]
  - ANGER [None]
  - ANXIETY [None]
  - DEPRESSION [None]
  - MANIA [None]
